FAERS Safety Report 20003428 (Version 1)
Quarter: 2021Q4

REPORT INFORMATION
  Report Type: Report from Study
  Country: IL (occurrence: IL)
  Receive Date: 20211027
  Receipt Date: 20211027
  Transmission Date: 20220303
  Serious: Yes (Hospitalization)
  Sender: FDA-Public Use
  Company Number: IL-SA-SAC20210816001063

PATIENT
  Age: 72 Year
  Sex: Female

DRUGS (1)
  1. DUPILUMAB [Suspect]
     Active Substance: DUPILUMAB
     Indication: Asthma
     Dosage: 300 MG, QOW
     Route: 058
     Dates: start: 20201021, end: 2021

REACTIONS (3)
  - Catheterisation cardiac [Unknown]
  - Heart valve replacement [Unknown]
  - Product use issue [Unknown]

NARRATIVE: CASE EVENT DATE: 20201021
